FAERS Safety Report 20511034 (Version 1)
Quarter: 2022Q1

REPORT INFORMATION
  Report Type: Spontaneous
  Country: GB (occurrence: GB)
  Receive Date: 20220224
  Receipt Date: 20220224
  Transmission Date: 20220424
  Serious: Yes (Hospitalization)
  Sender: FDA-Public Use
  Company Number: None

PATIENT
  Age: 50 Year
  Sex: Female

DRUGS (14)
  1. SERTRALINE [Suspect]
     Active Substance: SERTRALINE HYDROCHLORIDE
     Indication: Product used for unknown indication
  2. ARIPIPRAZOLE [Concomitant]
     Active Substance: ARIPIPRAZOLE
  3. CLONAZEPAM [Concomitant]
     Active Substance: CLONAZEPAM
  4. COCODAMOL [Concomitant]
     Active Substance: ACETAMINOPHEN\CODEINE PHOSPHATE
     Dosage: 30MG/500MG?1 OR 2 TABS QDS PRN, AS NECESSARY
  5. CYCLIZINE [Concomitant]
     Active Substance: CYCLIZINE
  6. FERROUS FUMARATE [Concomitant]
     Active Substance: FERROUS FUMARATE
  7. DYDROGESTERONE\ESTRADIOL [Concomitant]
     Active Substance: DYDROGESTERONE\ESTRADIOL
  8. LACTULOSE [Concomitant]
     Active Substance: LACTULOSE
     Dosage: 3.1-3.7G/5ML
  9. LAMOTRIGINE [Concomitant]
     Active Substance: LAMOTRIGINE
  10. LANSOPRAZOLE [Concomitant]
     Active Substance: LANSOPRAZOLE
     Dates: start: 20220210
  11. MORPHINE HYDROCHLORIDE [Concomitant]
     Active Substance: MORPHINE HYDROCHLORIDE
     Dosage: 10MG/5ML?5-10MG QDS, AS NECESSARY
  12. MORPHINE [Concomitant]
     Active Substance: MORPHINE
  13. NAPROXEN [Concomitant]
     Active Substance: NAPROXEN
  14. PREGABALIN [Concomitant]
     Active Substance: PREGABALIN

REACTIONS (2)
  - Interstitial lung disease [Not Recovered/Not Resolved]
  - Peripheral ischaemia [Unknown]

NARRATIVE: CASE EVENT DATE: 20220131
